FAERS Safety Report 4715394-7 (Version None)
Quarter: 2005Q3

REPORT INFORMATION
  Report Type: 
  Country: None (occurrence: None)
  Receive Date: 20050715
  Receipt Date: 20050705
  Transmission Date: 20060218
  Serious: Yes (Death)
  Sender: FDA-Public Use
  Company Number: ZA-ABBOTT-05P-143-0304962-00

PATIENT
  Sex: Male

DRUGS (2)
  1. EPILIM CHRONO TABLETS [Suspect]
     Indication: BIPOLAR DISORDER
     Route: 048
     Dates: start: 20010301
  2. CITALOPRAM HYDROBROMIDE [Concomitant]
     Indication: BIPOLAR DISORDER
     Route: 048
     Dates: start: 20021201

REACTIONS (4)
  - COMA [None]
  - CONGENITAL CYSTIC KIDNEY DISEASE [None]
  - PARKINSON'S DISEASE [None]
  - RESPIRATORY TRACT INFECTION [None]
